FAERS Safety Report 22178256 (Version 1)
Quarter: 2023Q2

REPORT INFORMATION
  Report Type: Spontaneous
  Country: BE (occurrence: BE)
  Receive Date: 20230405
  Receipt Date: 20230405
  Transmission Date: 20230721
  Serious: Yes (Hospitalization, Other)
  Sender: FDA-Public Use
  Company Number: BE-STADA-272201

PATIENT
  Age: 60 Year
  Sex: Male

DRUGS (3)
  1. TEMOZOLOMIDE [Suspect]
     Active Substance: TEMOZOLOMIDE
     Indication: Pituitary cancer metastatic
     Dosage: UNK
     Route: 065
  2. KETOCONAZOLE [Suspect]
     Active Substance: KETOCONAZOLE
     Indication: Hyperadrenocorticism
     Dosage: UNK
     Route: 065
     Dates: start: 2016
  3. PASIREOTIDE [Concomitant]
     Active Substance: PASIREOTIDE
     Indication: ACTH-producing pituitary tumour
     Dosage: UNK
     Route: 065
     Dates: start: 2016

REACTIONS (2)
  - Renal failure [Unknown]
  - Drug ineffective [Unknown]
